FAERS Safety Report 4800050-7 (Version None)
Quarter: 2005Q4

REPORT INFORMATION
  Report Type: 
  Country: None (occurrence: None)
  Receive Date: 20051017
  Receipt Date: 20051005
  Transmission Date: 20060501
  Serious: Yes (Death)
  Sender: FDA-Public Use
  Company Number: US-JNJFOC-20050902851

PATIENT
  Sex: Female

DRUGS (9)
  1. REMICADE [Suspect]
     Route: 042
  2. REMICADE [Suspect]
     Indication: SARCOIDOSIS
     Route: 042
  3. MOTRIN [Concomitant]
  4. ADVAIR DISKUS 100/50 [Concomitant]
  5. ADVAIR DISKUS 100/50 [Concomitant]
     Indication: SARCOIDOSIS
  6. COMBIVENT [Concomitant]
  7. COMBIVENT [Concomitant]
     Indication: SARCOIDOSIS
  8. HORMONE REPLACEMENT [Concomitant]
  9. NAPROXEN [Concomitant]
     Indication: OSTEOARTHRITIS

REACTIONS (8)
  - ACUTE RESPIRATORY DISTRESS SYNDROME [None]
  - ASPERGILLOSIS [None]
  - ENTEROCOCCAL BACTERAEMIA [None]
  - LUNG INFECTION PSEUDOMONAL [None]
  - RENAL FAILURE ACUTE [None]
  - RENAL TUBULAR NECROSIS [None]
  - SEPTIC SHOCK [None]
  - URINARY TRACT INFECTION [None]
